FAERS Safety Report 25975384 (Version 2)
Quarter: 2025Q4

REPORT INFORMATION
  Report Type: Spontaneous
  Country: EU (occurrence: EU)
  Receive Date: 20251029
  Receipt Date: 20251104
  Transmission Date: 20260118
  Serious: No
  Sender: SAMSUNG BIOEPIS
  Company Number: EU-SAMSUNG BIOEPIS-SB-2025-35519

PATIENT
  Age: 30 Year
  Sex: Male

DRUGS (2)
  1. ADALIMUMAB [Suspect]
     Active Substance: ADALIMUMAB
     Indication: Psoriatic arthropathy
  2. ADALIMUMAB [Suspect]
     Active Substance: ADALIMUMAB

REACTIONS (2)
  - Erythema [Unknown]
  - Product use issue [Unknown]
